FAERS Safety Report 16051776 (Version 1)
Quarter: 2019Q1

REPORT INFORMATION
  Report Type: Spontaneous
  Country: US (occurrence: US)
  Receive Date: 20190308
  Receipt Date: 20190308
  Transmission Date: 20190418
  Serious: Yes (Hospitalization, Other)
  Sender: FDA-Public Use
  Company Number: US-TEVA-2019-US-1020912

PATIENT
  Sex: Male

DRUGS (7)
  1. SPIRONOLACTONE. [Suspect]
     Active Substance: SPIRONOLACTONE
     Indication: BLOOD PRESSURE MEASUREMENT
     Dosage: 25 MILLIGRAM DAILY;
     Dates: start: 2017, end: 201710
  2. PROPRANOLOL ER ACTAVIS [Suspect]
     Active Substance: PROPRANOLOL HYDROCHLORIDE
     Indication: BLOOD PRESSURE MEASUREMENT
     Dosage: 320 MILLIGRAM DAILY;
     Dates: end: 201709
  3. HYDROCODONE-ACETAMINOPHEN [Concomitant]
     Active Substance: ACETAMINOPHEN\HYDROCODONE
     Dosage: 5-305; 1-2 TABLETS AS NEEDED EVERY SIX HOUS
     Dates: end: 201710
  4. HYDROCHLOROTHIAZID [Concomitant]
     Active Substance: HYDROCHLOROTHIAZIDE
     Indication: FLUID RETENTION
     Dosage: 25 MILLIGRAM DAILY;
     Dates: end: 201710
  5. CELEBREX [Concomitant]
     Active Substance: CELECOXIB
     Indication: ARTHRITIS
     Dosage: 200 MILLIGRAM DAILY;
     Dates: end: 201710
  6. GEMFIBROZIL. [Concomitant]
     Active Substance: GEMFIBROZIL
     Indication: BLOOD CHOLESTEROL INCREASED
     Dosage: 1200 MILLIGRAM DAILY;
  7. LYRICA [Suspect]
     Active Substance: PREGABALIN
     Indication: PAIN
     Dosage: 150MG CAPSULE IN MORNING AND 75MG AT BEDTIME
     Dates: end: 201710

REACTIONS (4)
  - Atrial fibrillation [Unknown]
  - Heart rate increased [Recovered/Resolved]
  - Blood potassium increased [Recovering/Resolving]
  - Heart rate decreased [Unknown]

NARRATIVE: CASE EVENT DATE: 20171005
